FAERS Safety Report 11166357 (Version 1)
Quarter: 2015Q2

REPORT INFORMATION
  Report Type: Spontaneous
  Country: US (occurrence: US)
  Receive Date: 20150605
  Receipt Date: 20150605
  Transmission Date: 20150821
  Serious: No
  Sender: FDA-Public Use
  Company Number: US-JNJFOC-20150415146

PATIENT
  Sex: Female
  Weight: 88.45 kg

DRUGS (2)
  1. PARAFON FORTE [Suspect]
     Active Substance: CHLORZOXAZONE
     Indication: BACK PAIN
     Dosage: 250 MG/300MG
     Route: 048
  2. PARAFON FORTE [Suspect]
     Active Substance: CHLORZOXAZONE
     Indication: BACK PAIN
     Route: 048

REACTIONS (1)
  - Drug ineffective [Unknown]
